FAERS Safety Report 6754740-X (Version None)
Quarter: 2010Q2

REPORT INFORMATION
  Report Type: 
  Country: None (occurrence: None)
  Receive Date: 20100601
  Receipt Date: 20100517
  Transmission Date: 20101027
  Serious: Yes (Hospitalization)
  Sender: FDA-Public Use
  Company Number: 009986

PATIENT
  Sex: Female
  Weight: 54 kg

DRUGS (4)
  1. LACOSAMIDE [Suspect]
     Indication: EPILEPSY
     Dosage: (200 MG BID ORAL)
     Route: 048
     Dates: start: 20100312, end: 20100416
  2. ENARENAL [Concomitant]
  3. TERTENSIF [Concomitant]
  4. VALPROIC ACID [Concomitant]

REACTIONS (3)
  - BLOOD GLUCOSE INCREASED [None]
  - EPILEPSY [None]
  - GRAND MAL CONVULSION [None]
